FAERS Safety Report 18190728 (Version 1)
Quarter: 2020Q3

REPORT INFORMATION
  Report Type: Spontaneous
  Country: US (occurrence: US)
  Receive Date: 20200824
  Receipt Date: 20200824
  Transmission Date: 20201103
  Serious: Yes (Other)
  Sender: FDA-Public Use
  Company Number: US-ASTRAZENECA-2020SF05498

PATIENT
  Sex: Female

DRUGS (1)
  1. BRILINTA [Suspect]
     Active Substance: TICAGRELOR
     Indication: MYOCARDIAL INFARCTION
     Dosage: UNKNOWN
     Route: 048

REACTIONS (7)
  - Respiratory disorder [Unknown]
  - Anaemia [Recovered/Resolved]
  - Fear of death [Unknown]
  - Contusion [Recovered/Resolved]
  - Thrombosis [Unknown]
  - Insomnia [Unknown]
  - Angina pectoris [Recovered/Resolved]
